FAERS Safety Report 6141098-2 (Version None)
Quarter: 2009Q2

REPORT INFORMATION
  Report Type: 
  Country: None (occurrence: None)
  Receive Date: 20090402
  Receipt Date: 20090323
  Transmission Date: 20091009
  Serious: Yes (Hospitalization, Other)
  Sender: FDA-Public Use
  Company Number: PHHY2009SE10624

PATIENT
  Sex: Male

DRUGS (7)
  1. LEPONEX [Suspect]
     Indication: SCHIZOPHRENIA, PARANOID TYPE
     Dosage: 250 MG, UNK
  2. LEPONEX [Suspect]
     Dosage: UNK
     Dates: start: 20090114
  3. METFORMIN HCL [Concomitant]
  4. CIPRALEX [Concomitant]
  5. ZYPREXA [Concomitant]
  6. NALTREXONE HYDROCHLORIDE [Concomitant]
  7. TOPIMAX [Concomitant]

REACTIONS (4)
  - LYMPHOCYTE COUNT DECREASED [None]
  - NEUTROPHIL COUNT INCREASED [None]
  - PSYCHOTIC DISORDER [None]
  - WHITE BLOOD CELL COUNT INCREASED [None]
